FAERS Safety Report 7713417-4 (Version None)
Quarter: 2011Q3

REPORT INFORMATION
  Report Type: 
  Country: None (occurrence: None)
  Receive Date: 20110826
  Receipt Date: 20110818
  Transmission Date: 20111222
  Serious: Yes (Other)
  Sender: FDA-Public Use
  Company Number: CA-JNJFOC-20110809593

PATIENT
  Sex: Female
  Weight: 63.6 kg

DRUGS (7)
  1. REMICADE [Suspect]
     Indication: RHEUMATOID ARTHRITIS
     Route: 042
     Dates: start: 20030806
  2. METHOTREXATE [Concomitant]
  3. DIDROCAL [Concomitant]
  4. ATACAND [Concomitant]
  5. RANITIDINE [Concomitant]
  6. FOLIC ACID [Concomitant]
  7. NORVASC [Concomitant]

REACTIONS (3)
  - GAIT DISTURBANCE [None]
  - HYPOTENSION [None]
  - ASTHENIA [None]
